FAERS Safety Report 9146249 (Version 2)
Quarter: 2013Q2

REPORT INFORMATION
  Report Type: Spontaneous
  Country: US (occurrence: US)
  Receive Date: 20130307
  Receipt Date: 20130426
  Transmission Date: 20140414
  Serious: Yes (Death)
  Sender: FDA-Public Use
  Company Number: US-PFIZER INC-2013076315

PATIENT
  Age: 47 Year
  Sex: Male

DRUGS (2)
  1. RAPAMUNE [Suspect]
     Indication: HEART TRANSPLANT
     Dosage: 1 MG, 2X/WEEK
  2. VFEND [Suspect]
     Indication: HEART TRANSPLANT
     Dosage: 200 MG, 2X/DAY

REACTIONS (1)
  - Death [Fatal]
